FAERS Safety Report 6962336-X (Version None)
Quarter: 2010Q3

REPORT INFORMATION
  Report Type: 
  Country: None (occurrence: None)
  Receive Date: 20100823
  Receipt Date: 20100615
  Transmission Date: 20110219
  Serious: No
  Sender: FDA-Public Use
  Company Number: 014029

PATIENT
  Sex: Female
  Weight: 75 kg

DRUGS (5)
  1. CIMZIA [Suspect]
     Indication: RHEUMATOID ARTHRITIS
     Dosage: (400 MG 1X/2 WEEKS SUBCUTANEOUS)
     Route: 058
     Dates: start: 20100517
  2. CORTICOSTEROID NOS [Concomitant]
  3. PLAQUENIL [Concomitant]
  4. PROVENTIL /00139501/ [Concomitant]
  5. AEROBID [Concomitant]

REACTIONS (2)
  - APPLICATION SITE PAIN [None]
  - URTICARIA [None]
